FAERS Safety Report 4633901-X (Version None)
Quarter: 2005Q2

REPORT INFORMATION
  Report Type: 
  Country: None (occurrence: None)
  Receive Date: 20050413
  Receipt Date: 20050308
  Transmission Date: 20051028
  Serious: Yes (Life-Threatening)
  Sender: FDA-Public Use
  Company Number: US-BRISTOL-MYERS SQUIBB COMPANY-12890174

PATIENT
  Age: 54 Year
  Sex: Male
  Weight: 93 kg

DRUGS (1)
  1. ABILIFY [Suspect]
     Dates: start: 20050222, end: 20050227

REACTIONS (3)
  - ARRHYTHMIA [None]
  - CHEST PAIN [None]
  - TACHYCARDIA [None]
